FAERS Safety Report 8392350 (Version 3)
Quarter: 2014Q1

REPORT INFORMATION
  Report Type: Report from Study
  Country: JP (occurrence: JP)
  Receive Date: 20120206
  Receipt Date: 20140228
  Transmission Date: 20141002
  Serious: Yes (Hospitalization)
  Sender: FDA-Public Use
  Company Number: JP-AMGEN-JPNSP2012006181

PATIENT
  Age: 73 Year
  Sex: Female
  Weight: 62 kg

DRUGS (4)
  1. ROMIPLOSTIM - KHK [Suspect]
     Indication: IMMUNE THROMBOCYTOPENIC PURPURA
     Dosage: 2 MUG/KG, QD
     Route: 058
     Dates: start: 20111215, end: 20120423
  2. PREDNISOLONE [Concomitant]
     Indication: IMMUNE THROMBOCYTOPENIC PURPURA
     Dosage: 5 MG, UNK
     Route: 048
     Dates: start: 20111201, end: 20111229
  3. ASCORBIC ACID [Concomitant]
     Indication: IMMUNE THROMBOCYTOPENIC PURPURA
     Dosage: 2000 MG, UNK
     Route: 048
     Dates: start: 20111201, end: 20111220
  4. CEPHARANTHINE [Concomitant]
     Indication: IMMUNE THROMBOCYTOPENIC PURPURA
     Dosage: UNK
     Dates: start: 20111201, end: 20111220

REACTIONS (5)
  - Platelet count decreased [Recovering/Resolving]
  - Haemorrhagic diathesis [Recovered/Resolved]
  - Thrombocytopenia [Recovered/Resolved]
  - Therapeutic response decreased [Unknown]
  - Antibody test [Unknown]
